FAERS Safety Report 4315379-9 (Version None)
Quarter: 2004Q1

REPORT INFORMATION
  Report Type: 
  Country: None (occurrence: None)
  Receive Date: 20040310
  Receipt Date: 20040310
  Transmission Date: 20041129
  Serious: No
  Sender: FDA-Public Use
  Company Number: None

PATIENT
  Age: 35 Year
  Sex: Female
  Weight: 109.3169 kg

DRUGS (1)
  1. REPRONEX [Suspect]
     Indication: INFERTILITY
     Dosage: 4 AMPULES DAILY
     Dates: start: 20030603, end: 20031003

REACTIONS (3)
  - ABDOMINAL PAIN UPPER [None]
  - CYST [None]
  - PANCREATITIS [None]
